FAERS Safety Report 9841629 (Version 1)
Quarter: 2013Q4

REPORT INFORMATION
  Report Type: Spontaneous
  Country: US (occurrence: None)
  Receive Date: 20131211
  Receipt Date: 20131211
  Transmission Date: 20140711
  Serious: Yes (Other)
  Sender: FDA-Public Use
  Company Number: ALL1-2012-01392

PATIENT
  Age: 49 Year
  Sex: Female
  Weight: 72.1 kg

DRUGS (4)
  1. VYVANSE [Suspect]
     Indication: ATTENTION DEFICIT/HYPERACTIVITY DISORDER
     Route: 048
     Dates: end: 2010
  2. CYMBALTA (DULOXETINE HYDROCHLORIDE) [Concomitant]
  3. SUBOXONE (BUPRENORPHINE HYDROCHLORIDE, NALOXONE HYDROCHLORIDE) [Concomitant]
  4. VITAMIN B12 (CYANOCOBALAMIN) [Concomitant]

REACTIONS (9)
  - Depression [None]
  - Obsessive-compulsive disorder [None]
  - Irritability [None]
  - Lethargy [None]
  - Insomnia [None]
  - Logorrhoea [None]
  - Drug effect increased [None]
  - Drug effect decreased [None]
  - Drug dose omission [None]
